FAERS Safety Report 18870394 (Version 2)
Quarter: 2021Q2

REPORT INFORMATION
  Report Type: Report from Study
  Country: GB (occurrence: GB)
  Receive Date: 20210209
  Receipt Date: 20210603
  Transmission Date: 20210717
  Serious: Yes (Hospitalization)
  Sender: FDA-Public Use
  Company Number: GB-JNJFOC-20210214099

PATIENT
  Sex: Female

DRUGS (5)
  1. STELARA [Suspect]
     Active Substance: USTEKINUMAB
     Indication: CROHN^S DISEASE
     Route: 058
     Dates: start: 20200416
  2. GABAPENTIN. [Concomitant]
     Active Substance: GABAPENTIN
  3. ESCITALOPRAM [Concomitant]
     Active Substance: ESCITALOPRAM OXALATE
  4. CYCLIZINE [Concomitant]
     Active Substance: CYCLIZINE
  5. STELARA [Suspect]
     Active Substance: USTEKINUMAB

REACTIONS (1)
  - Meningitis viral [Unknown]
